FAERS Safety Report 12212728 (Version 1)
Quarter: 2016Q1

REPORT INFORMATION
  Report Type: Other
  Country: GB (occurrence: GB)
  Receive Date: 20160328
  Receipt Date: 20160328
  Transmission Date: 20160526
  Serious: Yes (Other)
  Sender: FDA-Public Use
  Company Number: GB-CIPLA LTD.-2016GB03029

PATIENT

DRUGS (1)
  1. LAMOTRIGINE. [Suspect]
     Active Substance: LAMOTRIGINE
     Indication: SEIZURE
     Dosage: UNK, Z
     Route: 065

REACTIONS (5)
  - Swelling face [Unknown]
  - Seizure [Unknown]
  - Dementia [Unknown]
  - Hypersensitivity [Unknown]
  - Headache [Unknown]
